FAERS Safety Report 4859282-4 (Version None)
Quarter: 2005Q4

REPORT INFORMATION
  Report Type: 
  Country: None (occurrence: None)
  Receive Date: 20051215
  Receipt Date: 20051208
  Transmission Date: 20060501
  Serious: Yes (Hospitalization)
  Sender: FDA-Public Use
  Company Number: 2005-04801

PATIENT
  Age: 50 Year
  Sex: Female

DRUGS (3)
  1. CHLOROQUINE PHOSPHATE [Suspect]
     Indication: MALARIA PROPHYLAXIS
     Dosage: 100 MG, DAILY, ORAL
     Route: 048
     Dates: start: 20040307, end: 20040311
  2. PROGUANIL (PROGUANIL) [Suspect]
     Indication: MALARIA PROPHYLAXIS
     Dosage: 200 MG, DAILY, ORAL
     Route: 048
     Dates: start: 20040307, end: 20040311
  3. LEVOTHYROXINE SODIUM [Concomitant]

REACTIONS (1)
  - HEPATOTOXICITY [None]
